FAERS Safety Report 7933411-8 (Version None)
Quarter: 2011Q4

REPORT INFORMATION
  Report Type: 
  Country: None (occurrence: None)
  Receive Date: 20111122
  Receipt Date: 20111122
  Transmission Date: 20120403
  Serious: No
  Sender: FDA-Public Use
  Company Number: None

PATIENT
  Age: 43 Year
  Weight: 74 kg

DRUGS (1)
  1. PROPECIA [Suspect]
     Dosage: 1.25
     Route: 048
     Dates: start: 20070113, end: 20070120

REACTIONS (2)
  - ERECTILE DYSFUNCTION [None]
  - GENERAL PHYSICAL HEALTH DETERIORATION [None]
